FAERS Safety Report 25971377 (Version 1)
Quarter: 2025Q4

REPORT INFORMATION
  Report Type: Spontaneous
  Country: AU (occurrence: AU)
  Receive Date: 20251028
  Receipt Date: 20251028
  Transmission Date: 20260118
  Serious: Yes (Hospitalization)
  Sender: SANDOZ
  Company Number: AU-AstraZeneca-CH-00942818A

PATIENT
  Age: 56 Year
  Sex: Female
  Weight: 78 kg

DRUGS (2)
  1. CAPIVASERTIB [Suspect]
     Active Substance: CAPIVASERTIB
     Indication: Breast cancer female
     Dosage: 400 MG, Q12H
     Route: 065
     Dates: start: 20250818, end: 20250830
  2. FULVESTRANT [Suspect]
     Active Substance: FULVESTRANT
     Indication: Product used for unknown indication
     Dosage: UNK
     Route: 065
     Dates: start: 20250818

REACTIONS (3)
  - Rash morbilliform [Recovered/Resolved]
  - Skin plaque [Recovered/Resolved]
  - Rash [Recovered/Resolved]

NARRATIVE: CASE EVENT DATE: 20250829
